FAERS Safety Report 20374592 (Version 1)
Quarter: 2022Q1

REPORT INFORMATION
  Report Type: Spontaneous
  Country: GB (occurrence: None)
  Receive Date: 20220124
  Receipt Date: 20220124
  Transmission Date: 20220423
  Serious: Yes (unspecified)
  Sender: FDA-Public Use
  Company Number: None

PATIENT
  Age: 28 Year
  Sex: Female
  Weight: 58 kg

DRUGS (2)
  1. HYDROQUINONE 4% / TRETINOIN 0.025% [Suspect]
     Active Substance: HYDROQUINONE\TRETINOIN
     Indication: Chloasma
     Dates: start: 20220112, end: 20220121
  2. Viviscal vitamins [Concomitant]

REACTIONS (2)
  - Anxiety [None]
  - Product communication issue [None]

NARRATIVE: CASE EVENT DATE: 20220122
